FAERS Safety Report 14372877 (Version 6)
Quarter: 2018Q2

REPORT INFORMATION
  Report Type: Spontaneous
  Country: US (occurrence: US)
  Receive Date: 20180110
  Receipt Date: 20180523
  Transmission Date: 20180711
  Serious: Yes (Hospitalization)
  Sender: FDA-Public Use
  Company Number: US-PFIZER INC-2018009737

PATIENT
  Age: 79 Year
  Sex: Female
  Weight: 54.88 kg

DRUGS (3)
  1. SUTENT [Suspect]
     Active Substance: SUNITINIB MALATE
     Dosage: 37.5 MG, CYCLIC (DAY 1-14Q 21 DAYS)
     Route: 048
     Dates: start: 201712
  2. SUTENT [Suspect]
     Active Substance: SUNITINIB MALATE
     Indication: GASTROINTESTINAL STROMAL TUMOUR
     Dosage: 50 MG, CYCLIC (DAYS1-14 Q21 DAYS)
     Route: 048
     Dates: start: 20171214
  3. SUTENT [Suspect]
     Active Substance: SUNITINIB MALATE
     Dosage: 37.5 MG, CYCLIC (DAY 1-14Q 21 DAYS)
     Route: 048
     Dates: start: 20171214, end: 201805

REACTIONS (7)
  - Platelet count decreased [Unknown]
  - Rash [Unknown]
  - Dysphagia [Unknown]
  - Influenza [Unknown]
  - Appetite disorder [Unknown]
  - Arthralgia [Unknown]
  - Yellow skin [Unknown]
